FAERS Safety Report 25047383 (Version 1)
Quarter: 2025Q1

REPORT INFORMATION
  Report Type: Other
  Country: DE (occurrence: None)
  Receive Date: 20250306
  Receipt Date: 20250306
  Transmission Date: 20250409
  Serious: Yes (Death, Hospitalization, Other)
  Sender: INCYTE
  Company Number: None

PATIENT
  Age: 13 Year

DRUGS (6)
  1. RUXOLITINIB [Suspect]
     Active Substance: RUXOLITINIB
     Indication: Chronic graft versus host disease
     Dosage: 1 DOSAGE FORM, Q12H (1-0-1)
  2. BUDESONIDE [Concomitant]
     Active Substance: BUDESONIDE
     Indication: Product used for unknown indication
     Dosage: 1 DOSAGE FORM, QD (1-0-0)
  3. METHYLPREDNISOLONE [Concomitant]
     Active Substance: METHYLPREDNISOLONE
     Indication: Chronic graft versus host disease
     Dosage: 1 DOSAGE FORM, QD (1-0-0)
  4. OMEPRAZOLE [Concomitant]
     Active Substance: OMEPRAZOLE
     Indication: Product used for unknown indication
     Dosage: 1 DOSAGE FORM, QD (1-0-0)
  5. IBEROGAST ADVANCE [Concomitant]
     Indication: Product used for unknown indication
  6. INFECTOBICILLIN [Concomitant]
     Indication: Product used for unknown indication
     Dosage: 1 DOSAGE FORM, QD (1.5 MIO E-0-0)

REACTIONS (13)
  - Varicella zoster virus infection [Fatal]
  - Infection reactivation [Fatal]
  - Renal failure [Unknown]
  - Haemorrhage [Unknown]
  - Hepatic encephalopathy [Fatal]
  - Hyperammonaemia [Unknown]
  - Transaminases increased [Fatal]
  - Acute hepatic failure [Fatal]
  - Acute hepatic failure [Fatal]
  - Cardiac failure [Fatal]
  - Pain [Unknown]
  - Hepatic failure [Fatal]
  - Coagulation test abnormal [Fatal]
